FAERS Safety Report 6509236-7 (Version None)
Quarter: 2009Q4

REPORT INFORMATION
  Report Type: 
  Country: None (occurrence: None)
  Receive Date: 20091222
  Receipt Date: 20091210
  Transmission Date: 20100525
  Serious: Yes (Other)
  Sender: FDA-Public Use
  Company Number: US-RANBAXY-2009RR-29701

PATIENT
  Age: 60 Year
  Sex: Male

DRUGS (5)
  1. NAPROXEN [Suspect]
     Dosage: 500 MG, BID
  2. LISINOPRIL [Suspect]
     Dosage: 20 MG, BID
  3. RANITIDINE [Concomitant]
  4. CLOPIDOGREL [Concomitant]
  5. AMLODIPINE [Concomitant]

REACTIONS (2)
  - HYPERKALAEMIA [None]
  - PARALYSIS [None]
